FAERS Safety Report 15323042 (Version 1)
Quarter: 2018Q3

REPORT INFORMATION
  Report Type: Spontaneous
  Country: US (occurrence: US)
  Receive Date: 20180827
  Receipt Date: 20180827
  Transmission Date: 20181010
  Serious: Yes (Other)
  Sender: FDA-Public Use
  Company Number: US-MISSION PHARMACAL COMPANY-2054295

PATIENT
  Age: 34 Year
  Sex: Female

DRUGS (1)
  1. CITRANATAL B?CALM [Suspect]
     Active Substance: ASCORBIC ACID\CALCIUM CITRATE\CHOLECALCIFEROL\FOLIC ACID\IRON\IRON PENTACARBONYL\PYRIDOXINE HYDROCHLORIDE
     Indication: PREGNANCY
     Route: 048
     Dates: start: 20180626, end: 20180713

REACTIONS (3)
  - Nausea [Recovered/Resolved]
  - Abortion spontaneous [Recovered/Resolved]
  - Abdominal pain [Recovered/Resolved]
